FAERS Safety Report 7235724-4 (Version None)
Quarter: 2011Q1

REPORT INFORMATION
  Report Type: 
  Country: None (occurrence: None)
  Receive Date: 20110120
  Receipt Date: 20110117
  Transmission Date: 20110831
  Serious: Yes (Life-Threatening)
  Sender: FDA-Public Use
  Company Number: PHHO2011AU01273

PATIENT
  Sex: Female
  Weight: 82 kg

DRUGS (3)
  1. DIOVAN [Suspect]
     Indication: HYPERTENSION
     Route: 048
  2. EXFORGE [Suspect]
     Indication: HYPERTENSION
     Route: 048
  3. CO-DIOVAN [Suspect]
     Indication: HYPERTENSION
     Route: 048

REACTIONS (3)
  - DIARRHOEA [None]
  - CONCOMITANT DISEASE PROGRESSION [None]
  - COLON CANCER [None]
